FAERS Safety Report 7528980-6 (Version None)
Quarter: 2011Q2

REPORT INFORMATION
  Report Type: 
  Country: None (occurrence: None)
  Receive Date: 20110607
  Receipt Date: 20110525
  Transmission Date: 20111010
  Serious: Yes (Life-Threatening, Hospitalization)
  Sender: FDA-Public Use
  Company Number: CA-AMGEN-CANSP2011027338

PATIENT
  Sex: Male
  Weight: 72.562 kg

DRUGS (16)
  1. ALLOPURINOL [Suspect]
  2. ONE ALPHA [Suspect]
  3. CARDURA [Concomitant]
  4. MAGNESIUM SULFATE [Concomitant]
  5. ATACAND [Concomitant]
  6. MYFORTIC [Concomitant]
  7. PREDNISONE [Concomitant]
  8. LASIX [Concomitant]
  9. CALCIUM CARBONATE [Concomitant]
  10. LOPRESOR                           /00376902/ [Concomitant]
  11. ARANESP [Suspect]
     Indication: PRODUCT USED FOR UNKNOWN INDICATION
     Dosage: 100 A?G, UNK
     Route: 058
  12. EPREX [Suspect]
  13. NORVASC [Concomitant]
  14. PANTOLOC                           /01263202/ [Concomitant]
  15. CELLCEPT [Suspect]
  16. IMURAN [Concomitant]

REACTIONS (3)
  - ANTI-ERYTHROPOIETIN ANTIBODY NEGATIVE [None]
  - APLASIA PURE RED CELL [None]
  - HAEMOGLOBIN DECREASED [None]
